FAERS Safety Report 9174163 (Version 1)
Quarter: 2013Q1

REPORT INFORMATION
  Report Type: Spontaneous
  Country: GB (occurrence: None)
  Receive Date: 20130315
  Receipt Date: 20130315
  Transmission Date: 20140127
  Serious: Yes (Other)
  Sender: FDA-Public Use
  Company Number: 2013-03388

PATIENT
  Age: 46 Year
  Sex: Female
  Weight: 87 kg

DRUGS (4)
  1. ACYCLOVIR [Suspect]
     Indication: ENCEPHALITIS
     Route: 042
     Dates: start: 20130206, end: 20130211
  2. IBUPROFEN (IBUPROFEN) [Concomitant]
  3. PARACETAMOL (PARACETAMOL) [Concomitant]
  4. CODEINE (CODEINE) [Concomitant]

REACTIONS (6)
  - Dizziness [None]
  - Delusion [None]
  - Hallucination, visual [None]
  - Hallucination, auditory [None]
  - Paranoia [None]
  - Panic reaction [None]
